FAERS Safety Report 5818708-X (Version None)
Quarter: 2008Q3

REPORT INFORMATION
  Report Type: 
  Country: None (occurrence: None)
  Receive Date: 20080723
  Receipt Date: 20080616
  Transmission Date: 20090109
  Serious: No
  Sender: FDA-Public Use
  Company Number: US-BAYER-200826978NA

PATIENT
  Age: 47 Year
  Sex: Female
  Weight: 91 kg

DRUGS (2)
  1. MAGNEVIST [Suspect]
     Indication: NUCLEAR MAGNETIC RESONANCE IMAGING BRAIN
     Dosage: TOTAL DAILY DOSE: 20 ML  UNIT DOSE: 50 ML
     Route: 042
     Dates: start: 20080613, end: 20080613
  2. ATIVAN [Concomitant]
     Indication: PREMEDICATION

REACTIONS (2)
  - NAUSEA [None]
  - VOMITING [None]
